FAERS Safety Report 8037495-0 (Version None)
Quarter: 2012Q1

REPORT INFORMATION
  Report Type: 
  Country: None (occurrence: None)
  Receive Date: 20120111
  Receipt Date: 20120104
  Transmission Date: 20120608
  Serious: Yes (Hospitalization, Other)
  Sender: FDA-Public Use
  Company Number: FR-PFIZER INC-2012002455

PATIENT
  Age: 68 Year
  Sex: Male

DRUGS (9)
  1. LIPIODOL [Suspect]
     Indication: HEPATIC NEOPLASM MALIGNANT
     Dosage: UNK
     Dates: start: 20111109, end: 20111109
  2. SORAFENIB [Suspect]
     Indication: HEPATIC NEOPLASM MALIGNANT
     Dosage: 800 MG, 1X/DAY
     Route: 048
     Dates: start: 20111111, end: 20111117
  3. PRIMPERAN TAB [Suspect]
     Indication: HICCUPS
     Dosage: 10 MG, UNK
     Route: 042
     Dates: start: 20111118, end: 20111120
  4. DESLORATADINE [Concomitant]
  5. PANTOPRAZOLE [Suspect]
     Indication: GASTRITIS
     Dosage: 40 MG, 1X/DAY
     Route: 042
     Dates: start: 20111117, end: 20111120
  6. ALLOPURINOL [Concomitant]
  7. DOXORUBICIN HCL [Suspect]
     Indication: HEPATIC NEOPLASM MALIGNANT
     Dosage: UNK
     Route: 042
     Dates: start: 20111109, end: 20111109
  8. PROPRANOLOL [Concomitant]
  9. VALSARTAN [Concomitant]

REACTIONS (2)
  - DRUG RASH WITH EOSINOPHILIA AND SYSTEMIC SYMPTOMS [None]
  - TOXIC SKIN ERUPTION [None]
